FAERS Safety Report 5800683-5 (Version None)
Quarter: 2008Q3

REPORT INFORMATION
  Report Type: 
  Country: None (occurrence: None)
  Receive Date: 20080703
  Receipt Date: 20080618
  Transmission Date: 20090109
  Serious: Yes (Other)
  Sender: FDA-Public Use
  Company Number: GB-GENENTECH-263255

PATIENT
  Age: 56 Year

DRUGS (2)
  1. HERCEPTIN [Suspect]
     Indication: BREAST CANCER METASTATIC
     Dosage: UNK, 1/WEEK
  2. TAXOL [Suspect]
     Indication: BREAST CANCER METASTATIC

REACTIONS (2)
  - NEUTROPENIA [None]
  - STEVENS-JOHNSON SYNDROME [None]
